FAERS Safety Report 7498487-3 (Version None)
Quarter: 2011Q2

REPORT INFORMATION
  Report Type: 
  Country: None (occurrence: None)
  Receive Date: 20110524
  Receipt Date: 20110427
  Transmission Date: 20111010
  Serious: Yes (Hospitalization, Other)
  Sender: FDA-Public Use
  Company Number: US-BAYER-201041637NA

PATIENT
  Sex: Female
  Weight: 106.58 kg

DRUGS (9)
  1. AVIANE-28 [Concomitant]
     Indication: CONTRACEPTION
     Dosage: UNK
     Dates: start: 20070729, end: 20070827
  2. LEVOTHYROXINE SODIUM [Concomitant]
     Indication: HYPOTHYROIDISM
     Dosage: 1 U, QD
     Route: 048
  3. ZOVIA 1/35E-21 [Concomitant]
     Indication: CONTRACEPTION
     Dosage: UNK
     Dates: start: 20070924, end: 20090721
  4. ALESSE [Concomitant]
     Route: 048
  5. YAZ [Suspect]
     Dosage: UNK
     Route: 048
     Dates: start: 20060501, end: 20070701
  6. NECON 1/50 [Concomitant]
     Indication: CONTRACEPTION
     Dosage: UNK UNK, TID
     Route: 048
     Dates: start: 20070717, end: 20070723
  7. YASMIN [Suspect]
     Route: 048
     Dates: start: 20060501, end: 20070815
  8. CELEXA [Concomitant]
     Dosage: 1 U, QD
     Route: 048
  9. CELEXA [Concomitant]
     Dosage: 40 MG, UNK
     Route: 048

REACTIONS (9)
  - ABDOMINAL PAIN [None]
  - GALLBLADDER DISORDER [None]
  - VAGINAL HAEMORRHAGE [None]
  - CHOLECYSTITIS CHRONIC [None]
  - NAUSEA [None]
  - VOMITING [None]
  - CHOLESTEROSIS [None]
  - CHOLELITHIASIS [None]
  - ABDOMINAL PAIN LOWER [None]
